FAERS Safety Report 8558116-4 (Version None)
Quarter: 2012Q3

REPORT INFORMATION
  Report Type: 
  Country: None (occurrence: None)
  Receive Date: 20120801
  Receipt Date: 20120724
  Transmission Date: 20120928
  Serious: Yes (Hospitalization, Other)
  Sender: FDA-Public Use
  Company Number: US-ABBOTT-12P-163-0938285-00

PATIENT
  Age: 91 Year
  Sex: Female

DRUGS (22)
  1. MULTI-VITAMIN [Concomitant]
     Indication: VITAMIN SUPPLEMENTATION
     Dosage: DAILY
     Route: 048
  2. HUMIRA [Suspect]
     Indication: COLITIS
  3. FOSAMAX [Concomitant]
     Indication: OSTEOPOROSIS
  4. ZOLOFT [Concomitant]
     Indication: PRODUCT USED FOR UNKNOWN INDICATION
     Dosage: 150 MG IN AM, 100MG IN PM
  5. VITAMIN D [Concomitant]
     Indication: PRODUCT USED FOR UNKNOWN INDICATION
  6. LORTAB [Concomitant]
     Indication: PAIN
     Dosage: 10/500
  7. METOPROLOL TARTRATE [Concomitant]
     Indication: PRODUCT USED FOR UNKNOWN INDICATION
     Dosage: 1-1/2 TABLETS AT HOUR OF SLEEP
  8. CALCIUM [Concomitant]
     Indication: MINERAL SUPPLEMENTATION
     Route: 048
  9. EXELON [Concomitant]
     Indication: DEMENTIA
     Dosage: PATCH ONCE DAILY
  10. ASACOL [Concomitant]
     Indication: PRODUCT USED FOR UNKNOWN INDICATION
  11. PREDNISONE [Suspect]
     Indication: PRODUCT USED FOR UNKNOWN INDICATION
  12. AZATHIOPRINE [Concomitant]
     Indication: RHEUMATOID ARTHRITIS
  13. COSOPT [Concomitant]
     Indication: GLAUCOMA
  14. METFORMIN HYDROCHLORIDE [Concomitant]
     Indication: DIABETES MELLITUS
     Route: 048
  15. INSULIN [Concomitant]
     Indication: PRODUCT USED FOR UNKNOWN INDICATION
     Dosage: SLIDING SCALE QID
  16. PRAVASTATIN [Concomitant]
     Indication: BLOOD CHOLESTEROL INCREASED
     Dosage: AT HOUR OF SLEEP
     Route: 048
  17. LANTUS [Concomitant]
     Indication: PRODUCT USED FOR UNKNOWN INDICATION
  18. PRILOSEC [Concomitant]
     Indication: PRODUCT USED FOR UNKNOWN INDICATION
     Route: 048
  19. HUMIRA [Suspect]
     Indication: GASTROENTERITIS
     Dates: start: 20120404, end: 20120503
  20. NORVASC [Concomitant]
     Indication: HYPERTENSION
     Route: 048
  21. DORZOLAMIDE [Concomitant]
     Indication: GLAUCOMA
  22. LATANOPROST [Concomitant]
     Indication: EYE IRRITATION
     Dosage: 1 GTT DAILY

REACTIONS (6)
  - GAIT DISTURBANCE [None]
  - DEMENTIA [None]
  - BLOOD GLUCOSE ABNORMAL [None]
  - URINARY TRACT INFECTION [None]
  - DIARRHOEA [None]
  - ASTHENIA [None]
